FAERS Safety Report 25317686 (Version 1)
Quarter: 2025Q2

REPORT INFORMATION
  Report Type: Spontaneous
  Country: IT (occurrence: IT)
  Receive Date: 20250515
  Receipt Date: 20250515
  Transmission Date: 20250717
  Serious: No
  Sender: ALKEM
  Company Number: IT-ALKEM LABORATORIES LIMITED-IT-ALKEM-2024-15974

PATIENT
  Age: 4 Year

DRUGS (6)
  1. AZATHIOPRINE [Suspect]
     Active Substance: AZATHIOPRINE
     Indication: Hepatitis
     Dosage: UNK, QD (1-2 MILLIGRAM/KILOGRAM)
     Route: 065
  2. AZATHIOPRINE [Suspect]
     Active Substance: AZATHIOPRINE
     Indication: Autoimmune haemolytic anaemia
  3. CYCLOSPORINE [Suspect]
     Active Substance: CYCLOSPORINE
     Indication: Hepatitis
     Route: 065
  4. CYCLOSPORINE [Suspect]
     Active Substance: CYCLOSPORINE
     Indication: Autoimmune haemolytic anaemia
  5. PREDNISONE [Suspect]
     Active Substance: PREDNISONE
     Indication: Hepatitis
     Dosage: UNK, QD (2-3 MILLIGRAM/KILOGRAM)
     Route: 065
  6. PREDNISONE [Suspect]
     Active Substance: PREDNISONE
     Indication: Autoimmune haemolytic anaemia

REACTIONS (1)
  - Therapy partial responder [Unknown]
